FAERS Safety Report 16402072 (Version 5)
Quarter: 2020Q3

REPORT INFORMATION
  Report Type: Report from Study
  Country: BR (occurrence: BR)
  Receive Date: 20190607
  Receipt Date: 20191127
  Transmission Date: 20201104
  Serious: Yes (Hospitalization, Other)
  Sender: FDA-Public Use
  Company Number: PHHY2016BR110648

PATIENT
  Age: 77 Year
  Sex: Male
  Weight: 68 kg

DRUGS (6)
  1. XOLAIR [Suspect]
     Active Substance: OMALIZUMAB
     Dosage: UNK
     Route: 058
     Dates: start: 20190521
  2. XOLAIR [Suspect]
     Active Substance: OMALIZUMAB
     Indication: ASTHMA
     Dosage: UNK UNK, BIW
     Route: 058
     Dates: start: 20080922
  3. FORASEQ [Suspect]
     Active Substance: BUDESONIDE\FORMOTEROL FUMARATE
     Indication: ASTHMA
     Dosage: UNK, BID
     Route: 048
     Dates: start: 2007
  4. XOLAIR [Suspect]
     Active Substance: OMALIZUMAB
     Dosage: UNK
     Route: 058
     Dates: start: 20190507
  5. XOLAIR [Suspect]
     Active Substance: OMALIZUMAB
     Dosage: UNK
     Route: 058
     Dates: start: 20190423
  6. XOLAIR [Suspect]
     Active Substance: OMALIZUMAB
     Dosage: UNK, EVERY 15 DAYS
     Route: 058
     Dates: start: 2012

REACTIONS (6)
  - Catarrh [Recovered/Resolved]
  - Cough [Recovered/Resolved]
  - Pneumonia [Recovering/Resolving]
  - Pyrexia [Recovering/Resolving]
  - Cholangitis [Recovering/Resolving]
  - Hepatobiliary cancer [Recovered/Resolved]

NARRATIVE: CASE EVENT DATE: 201210
